FAERS Safety Report 5960770-8 (Version None)
Quarter: 2008Q4

REPORT INFORMATION
  Report Type: 
  Country: None (occurrence: None)
  Receive Date: 20081120
  Receipt Date: 20081112
  Transmission Date: 20090506
  Serious: Yes (Disabling, Other)
  Sender: FDA-Public Use
  Company Number: US-PFIZER INC-2008095812

PATIENT
  Sex: Male
  Weight: 49.9 kg

DRUGS (3)
  1. LIPITOR [Suspect]
     Indication: BLOOD CHOLESTEROL INCREASED
     Route: 048
     Dates: start: 19990101
  2. PREDNISONE TAB [Concomitant]
  3. MESALAMINE [Concomitant]

REACTIONS (2)
  - COLITIS [None]
  - WEIGHT DECREASED [None]
